FAERS Safety Report 23530720 (Version 8)
Quarter: 2024Q4

REPORT INFORMATION
  Report Type: Spontaneous
  Country: PT (occurrence: PT)
  Receive Date: 20240216
  Receipt Date: 20241113
  Transmission Date: 20250115
  Serious: Yes (Death, Other)
  Sender: CELLTRION
  Company Number: PT-CELLTRION INC.-2024PT003695

PATIENT

DRUGS (28)
  1. RITUXIMAB [Suspect]
     Active Substance: RITUXIMAB
     Indication: Angiocentric lymphoma
     Route: 065
  2. RITUXIMAB [Suspect]
     Active Substance: RITUXIMAB
     Indication: T-cell lymphoma refractory
  3. INFLIXIMAB [Suspect]
     Active Substance: INFLIXIMAB
     Indication: Autoimmune haemolytic anaemia
     Dosage: UNKNOWN
     Route: 065
  4. INFLIXIMAB [Suspect]
     Active Substance: INFLIXIMAB
     Indication: Ankylosing spondylitis
     Dosage: FOR THE PAST 9 YEARS
     Route: 042
     Dates: start: 2013
  5. CARBOPLATIN [Suspect]
     Active Substance: CARBOPLATIN
     Indication: Angiocentric lymphoma
     Dosage: UNKNOWN
     Route: 065
  6. CARBOPLATIN [Suspect]
     Active Substance: CARBOPLATIN
     Indication: T-cell lymphoma refractory
  7. CYCLOPHOSPHAMIDE [Suspect]
     Active Substance: CYCLOPHOSPHAMIDE
     Indication: T-cell lymphoma refractory
     Dosage: UNK
     Route: 065
  8. DEXAMETHASONE [Suspect]
     Active Substance: DEXAMETHASONE
     Indication: Angiocentric lymphoma
     Route: 065
  9. DEXAMETHASONE [Suspect]
     Active Substance: DEXAMETHASONE
     Indication: T-cell lymphoma refractory
  10. DOXORUBICIN [Suspect]
     Active Substance: DOXORUBICIN
     Indication: Angiocentric lymphoma
     Dosage: UNK
     Route: 065
  11. DOXORUBICIN [Suspect]
     Active Substance: DOXORUBICIN
     Indication: T-cell lymphoma refractory
  12. ETOPOSIDE [Suspect]
     Active Substance: ETOPOSIDE
     Indication: Angiocentric lymphoma
     Route: 065
  13. ETOPOSIDE [Suspect]
     Active Substance: ETOPOSIDE
     Indication: T-cell lymphoma refractory
  14. IFOSFAMIDE [Suspect]
     Active Substance: IFOSFAMIDE
     Indication: Angiocentric lymphoma
     Route: 065
  15. IFOSFAMIDE [Suspect]
     Active Substance: IFOSFAMIDE
     Indication: T-cell lymphoma refractory
  16. PREDNISOLONE [Suspect]
     Active Substance: PREDNISOLONE
     Indication: Ankylosing spondylitis
     Dosage: LOW DOSE ADMINISTERED FOR THE PAST 9 YEARS
     Route: 065
  17. PREDNISOLONE [Suspect]
     Active Substance: PREDNISOLONE
     Indication: Autoimmune haemolytic anaemia
     Dosage: UNK
     Route: 065
  18. PREDNISOLONE [Suspect]
     Active Substance: PREDNISOLONE
     Indication: T-cell lymphoma refractory
     Dosage: LOW DOSE ADMINISTERED FOR THE PAST 9 YEARS
     Route: 065
     Dates: start: 2013
  19. PREDNISOLONE [Suspect]
     Active Substance: PREDNISOLONE
     Indication: Autoimmune haemolytic anaemia
     Dosage: LOW DOSE ADMINISTERED FOR THE PAST 9 YEARS
     Dates: start: 2013
  20. PREDNISOLONE [Suspect]
     Active Substance: PREDNISOLONE
     Indication: Ankylosing spondylitis
  21. VINCRISTINE [Suspect]
     Active Substance: VINCRISTINE
     Indication: Angiocentric lymphoma
     Route: 065
  22. VINCRISTINE [Suspect]
     Active Substance: VINCRISTINE
     Indication: T-cell lymphoma refractory
  23. REMICADE [Suspect]
     Active Substance: INFLIXIMAB
     Indication: Autoimmune haemolytic anaemia
     Dosage: FOR THE PAST 9 YEARS
     Route: 042
     Dates: start: 2013
  24. REMICADE [Suspect]
     Active Substance: INFLIXIMAB
     Indication: Ankylosing spondylitis
     Dosage: UNK
     Route: 065
  25. REMICADE [Suspect]
     Active Substance: INFLIXIMAB
     Indication: Autoimmune haemolytic anaemia
     Route: 065
  26. REMICADE [Suspect]
     Active Substance: INFLIXIMAB
     Indication: Ankylosing spondylitis
  27. PREDNISONE [Concomitant]
     Active Substance: PREDNISONE
     Indication: Product used for unknown indication
     Dosage: UNKNOWN
     Route: 065
  28. PREDNISONE [Concomitant]
     Active Substance: PREDNISONE
     Indication: Ankylosing spondylitis
     Dosage: UNKNOWN, LOW DOSE
     Route: 065
     Dates: start: 2013

REACTIONS (12)
  - Death [Fatal]
  - Gastrointestinal toxicity [Fatal]
  - Haematotoxicity [Fatal]
  - T-cell lymphoma refractory [Fatal]
  - Hepatosplenomegaly [Fatal]
  - Epstein-Barr virus test positive [Fatal]
  - Therapy non-responder [Fatal]
  - Epstein-Barr virus associated lymphoma [Fatal]
  - Immunosuppression [Unknown]
  - Infection [Unknown]
  - Drug ineffective [Unknown]
  - Intentional product use issue [Unknown]
